FAERS Safety Report 19537447 (Version 1)
Quarter: 2021Q3

REPORT INFORMATION
  Report Type: Spontaneous
  Country: CN (occurrence: CN)
  Receive Date: 20210714
  Receipt Date: 20210714
  Transmission Date: 20211014
  Serious: Yes (Other)
  Sender: FDA-Public Use
  Company Number: CN-B.I. PHARMACEUTICALS,INC./RIDGEFIELD-2021-BI-114414

PATIENT
  Age: 1 Year
  Sex: Female

DRUGS (2)
  1. CEFOTAXIME SODIUM [Concomitant]
     Active Substance: CEFOTAXIME SODIUM
     Indication: PNEUMONIA BACTERIAL
     Dosage: POWDER INJECTION
     Route: 042
     Dates: start: 20210528, end: 20210602
  2. COMBIVENT [Suspect]
     Active Substance: ALBUTEROL SULFATE\IPRATROPIUM BROMIDE
     Indication: PNEUMONIA BACTERIAL
     Route: 055
     Dates: start: 20210528, end: 20210602

REACTIONS (2)
  - Flushing [Recovered/Resolved]
  - Off label use [Unknown]

NARRATIVE: CASE EVENT DATE: 20210602
